FAERS Safety Report 13590914 (Version 2)
Quarter: 2017Q2

REPORT INFORMATION
  Report Type: Report from Study
  Country: None (occurrence: BR)
  Receive Date: 20170530
  Receipt Date: 20170605
  Transmission Date: 20170830
  Serious: Yes (Hospitalization, Disabling, Other)
  Sender: FDA-Public Use
  Company Number: BR-ABBVIE-10P-020-0681556-00

PATIENT
  Sex: Male

DRUGS (1)
  1. HUMIRA [Suspect]
     Active Substance: ADALIMUMAB
     Indication: CROHN^S DISEASE
     Route: 058
     Dates: start: 201004

REACTIONS (11)
  - Osteomyelitis [Recovering/Resolving]
  - Loss of personal independence in daily activities [Unknown]
  - Condition aggravated [Unknown]
  - Fatigue [Unknown]
  - Fall [Unknown]
  - Arthralgia [Unknown]
  - Pain in extremity [Unknown]
  - Hip fracture [Not Recovered/Not Resolved]
  - Femur fracture [Not Recovered/Not Resolved]
  - Back pain [Unknown]
  - Impaired work ability [Unknown]
